FAERS Safety Report 10094407 (Version 1)
Quarter: 2014Q2

REPORT INFORMATION
  Report Type: Spontaneous
  Country: US (occurrence: US)
  Receive Date: 20140422
  Receipt Date: 20140422
  Transmission Date: 20141212
  Serious: Yes (Other)
  Sender: FDA-Public Use
  Company Number: US-RANBAXY-2014US-80463

PATIENT
  Sex: Female

DRUGS (1)
  1. ABSORICA [Suspect]
     Indication: PRODUCT USED FOR UNKNOWN INDICATION
     Dosage: UNK
     Route: 065
     Dates: start: 20131218, end: 20140201

REACTIONS (6)
  - Dry skin [Unknown]
  - Rectal haemorrhage [Unknown]
  - Skin fissures [Unknown]
  - Skin discolouration [Unknown]
  - Nasal dryness [Unknown]
  - Headache [Unknown]
